FAERS Safety Report 5224181-5 (Version None)
Quarter: 2007Q1

REPORT INFORMATION
  Report Type: 
  Country: None (occurrence: None)
  Receive Date: 20070130
  Receipt Date: 20070116
  Transmission Date: 20070707
  Serious: Yes (Hospitalization)
  Sender: FDA-Public Use
  Company Number: FR-ELI_LILLY_AND_COMPANY-FR200609003953

PATIENT
  Age: 69 Year
  Sex: Female

DRUGS (3)
  1. FORTEO [Suspect]
     Indication: OSTEOPOROSIS
     Dosage: 20 UG, DAILY (1/D)
     Route: 058
     Dates: start: 20060711
  2. LAMALINE [Concomitant]
     Indication: PAIN
     Dosage: 2 D/F, DAILY (1/D)
  3. DAFALGAN [Concomitant]
     Indication: PAIN
     Dosage: 4 D/F, DAILY (1/D)
     Route: 048

REACTIONS (5)
  - DIARRHOEA [None]
  - INGUINAL HERNIA [None]
  - VISION BLURRED [None]
  - VISUAL ACUITY REDUCED [None]
  - VOMITING [None]
